FAERS Safety Report 4732642-8 (Version None)
Quarter: 2005Q3

REPORT INFORMATION
  Report Type: 
  Country: None (occurrence: None)
  Receive Date: 20050801
  Receipt Date: 20050720
  Transmission Date: 20060218
  Serious: Yes (Hospitalization)
  Sender: FDA-Public Use
  Company Number: 2005105636

PATIENT
  Age: 42 Year
  Sex: Male
  Weight: 68 kg

DRUGS (16)
  1. FELDENE [Suspect]
     Indication: ILL-DEFINED DISORDER
     Dosage: 20 MG, ORAL
     Route: 048
     Dates: start: 20050317, end: 20050318
  2. DIPRIVAN [Concomitant]
  3. SUFENTA [Concomitant]
  4. TRACRIUM ^BURROUGHS WELLCOME^ (ATRACURIUM BESILATE) [Concomitant]
  5. MIDAZOLAM HCL [Concomitant]
  6. KEFANDOL (CEFAMANDOLE) [Concomitant]
  7. ACETAMINOPHEN [Concomitant]
  8. MORPHINE [Concomitant]
  9. VENOFER (SACCHARATED IRON OXIDE0 [Concomitant]
  10. OMEPRAZOLE [Concomitant]
  11. PRIMPERAN TAB [Concomitant]
  12. KETOPROFEN [Concomitant]
  13. INEXIUM (ESOMEPRAZOLE MAGNESIUM) [Concomitant]
  14. FERROUS SULFATE TAB [Concomitant]
  15. FOLIC ACID [Concomitant]
  16. LOVENOX [Concomitant]

REACTIONS (4)
  - EOSINOPHILIA [None]
  - HAEMOGLOBIN DECREASED [None]
  - OEDEMA PERIPHERAL [None]
  - TOXIC EPIDERMAL NECROLYSIS [None]
